FAERS Safety Report 5875349-6 (Version None)
Quarter: 2008Q3

REPORT INFORMATION
  Report Type: 
  Country: None (occurrence: None)
  Receive Date: 20080904
  Receipt Date: 20080820
  Transmission Date: 20090109
  Serious: Yes (Other)
  Sender: FDA-Public Use
  Company Number: DSU-2008-01314

PATIENT
  Sex: Male

DRUGS (1)
  1. AZOR [Suspect]
     Indication: HYPERTENSION
     Dosage: 5/20 MG (QD), PER ORAL
     Route: 048
     Dates: start: 20080101, end: 20080101

REACTIONS (2)
  - BLOOD PRESSURE SYSTOLIC DECREASED [None]
  - SYNCOPE [None]
